FAERS Safety Report 25653076 (Version 2)
Quarter: 2025Q3

REPORT INFORMATION
  Report Type: Spontaneous
  Country: EU (occurrence: EU)
  Receive Date: 20250807
  Receipt Date: 20250820
  Transmission Date: 20251021
  Serious: Yes (Hospitalization)
  Sender: TEVA
  Company Number: EU-TEVA-VS-3358498

PATIENT
  Age: 47 Year
  Sex: Male

DRUGS (13)
  1. CARBOPLATIN [Suspect]
     Active Substance: CARBOPLATIN
     Indication: Extragonadal primary germ cell tumour
     Route: 065
     Dates: start: 2023
  2. CARBOPLATIN [Suspect]
     Active Substance: CARBOPLATIN
     Indication: Extragonadal primary germ cell tumour
     Route: 065
     Dates: start: 2023
  3. CARBOPLATIN [Suspect]
     Active Substance: CARBOPLATIN
     Indication: Extragonadal primary germ cell tumour
     Route: 065
     Dates: start: 2023
  4. ETOPOSIDE [Suspect]
     Active Substance: ETOPOSIDE
     Indication: Extragonadal primary germ cell tumour
     Route: 065
     Dates: start: 2023
  5. ETOPOSIDE [Suspect]
     Active Substance: ETOPOSIDE
     Indication: Extragonadal primary germ cell tumour
     Route: 065
     Dates: start: 2023
  6. ETOPOSIDE [Suspect]
     Active Substance: ETOPOSIDE
     Indication: Extragonadal primary germ cell tumour
     Route: 065
     Dates: start: 2023
  7. ETOPOSIDE [Suspect]
     Active Substance: ETOPOSIDE
     Indication: Extragonadal primary germ cell tumour
     Route: 065
     Dates: start: 2023
  8. BLEOMYCIN [Suspect]
     Active Substance: BLEOMYCIN SULFATE
     Indication: Extragonadal primary germ cell tumour
     Route: 065
     Dates: start: 2023
  9. BLEOMYCIN [Suspect]
     Active Substance: BLEOMYCIN SULFATE
     Indication: Extragonadal primary germ cell tumour
     Route: 065
     Dates: start: 2023
  10. BLEOMYCIN [Suspect]
     Active Substance: BLEOMYCIN SULFATE
     Indication: Extragonadal primary germ cell tumour
     Route: 065
     Dates: start: 2023
  11. CISPLATIN [Suspect]
     Active Substance: CISPLATIN
     Indication: Extragonadal primary germ cell tumour
     Route: 065
     Dates: start: 2023
  12. CISPLATIN [Suspect]
     Active Substance: CISPLATIN
     Indication: Extragonadal primary germ cell tumour
     Route: 065
     Dates: start: 2023
  13. CISPLATIN [Suspect]
     Active Substance: CISPLATIN
     Indication: Extragonadal primary germ cell tumour
     Route: 065
     Dates: start: 2023

REACTIONS (10)
  - Haematotoxicity [Unknown]
  - Neutropenia [Unknown]
  - Peritonitis [Unknown]
  - Hyperalbuminaemia [Unknown]
  - Septic encephalopathy [Recovered/Resolved]
  - Hypokalaemia [Unknown]
  - Colitis [Unknown]
  - Sepsis [Recovered/Resolved]
  - Oedema peripheral [Unknown]
  - Nausea [Unknown]

NARRATIVE: CASE EVENT DATE: 20230101
